FAERS Safety Report 17557394 (Version 1)
Quarter: 2020Q1

REPORT INFORMATION
  Report Type: Spontaneous
  Country: AR (occurrence: AR)
  Receive Date: 20200318
  Receipt Date: 20200318
  Transmission Date: 20200409
  Serious: Yes (Death)
  Sender: FDA-Public Use
  Company Number: NVSC2020AR077383

PATIENT

DRUGS (2)
  1. FILGRASTIM [Suspect]
     Active Substance: FILGRASTIM
     Indication: PRODUCT USED FOR UNKNOWN INDICATION
     Dosage: 5 UG/KG QD
     Route: 065
  2. FILGRASTIM [Suspect]
     Active Substance: FILGRASTIM
     Dosage: 10 UG/KG QD
     Route: 065

REACTIONS (1)
  - Multiple organ dysfunction syndrome [Fatal]
